FAERS Safety Report 8676219 (Version 2)
Quarter: 2013Q4

REPORT INFORMATION
  Report Type: Spontaneous
  Country: US (occurrence: US)
  Receive Date: 20120720
  Receipt Date: 20131101
  Transmission Date: 20140711
  Serious: No
  Sender: FDA-Public Use
  Company Number: US-009507513-1207USA005239

PATIENT
  Age: 80 Year
  Sex: Male

DRUGS (1)
  1. NASONEX [Suspect]
     Indication: HYPERSENSITIVITY
     Dosage: 2 DF, QD
     Route: 045
     Dates: start: 201206, end: 20120714

REACTIONS (1)
  - Oral candidiasis [Recovering/Resolving]
